FAERS Safety Report 15193302 (Version 1)
Quarter: 2018Q3

REPORT INFORMATION
  Report Type: Spontaneous
  Country: FR (occurrence: FR)
  Receive Date: 20180725
  Receipt Date: 20180725
  Transmission Date: 20181010
  Serious: Yes (Other)
  Sender: FDA-Public Use
  Company Number: FR-B.I. PHARMACEUTICALS,INC./RIDGEFIELD-2018-12-002510

PATIENT
  Age: 51 Year
  Sex: Female
  Weight: 97 kg

DRUGS (3)
  1. MICARDIS [Suspect]
     Active Substance: TELMISARTAN
     Indication: HYPERTENSION
     Route: 048
     Dates: start: 2013
  2. ZENTEL [Suspect]
     Active Substance: ALBENDAZOLE
     Indication: PAIN
     Route: 048
     Dates: start: 20171225, end: 20180618
  3. BILTRICIDE [Suspect]
     Active Substance: PRAZIQUANTEL
     Indication: PAIN
     Route: 048
     Dates: start: 20171225, end: 20180618

REACTIONS (1)
  - Hepatitis [Not Recovered/Not Resolved]

NARRATIVE: CASE EVENT DATE: 20180514
